FAERS Safety Report 16465067 (Version 1)
Quarter: 2019Q2

REPORT INFORMATION
  Report Type: Spontaneous
  Country: FR (occurrence: FR)
  Receive Date: 20190621
  Receipt Date: 20190621
  Transmission Date: 20190711
  Serious: Yes (Death, Hospitalization)
  Sender: FDA-Public Use
  Company Number: FR-MYLANLABS-2019M1057860

PATIENT
  Age: 74 Year
  Sex: Female

DRUGS (1)
  1. CELECOXIB. [Suspect]
     Active Substance: CELECOXIB
     Indication: BACK PAIN
     Dosage: 200 MILLIGRAM, TOTAL (200 MG, SINGLE)
     Dates: start: 20170406, end: 20170406

REACTIONS (2)
  - Vanishing bile duct syndrome [Fatal]
  - Hepatitis cholestatic [Fatal]
